FAERS Safety Report 8433968-7 (Version None)
Quarter: 2012Q2

REPORT INFORMATION
  Report Type: 
  Country: None (occurrence: None)
  Receive Date: 20120323
  Receipt Date: 20110211
  Transmission Date: 20120825
  Serious: Yes (Disabling)
  Sender: FDA-Public Use
  Company Number: 163-21880-11021630

PATIENT
  Age: 71 Year
  Sex: Female

DRUGS (2)
  1. CELLCEPT (MYCOPHENOLATE MOFETIL) (UNKNOWN) [Concomitant]
  2. LENALIDOMIDE [Suspect]
     Indication: MULTIPLE MYELOMA
     Dosage: 25 MG, X 21 D, PO
     Route: 048
     Dates: start: 20110101

REACTIONS (2)
  - PAIN IN EXTREMITY [None]
  - CONTUSION [None]
